FAERS Safety Report 15637519 (Version 1)
Quarter: 2018Q4

REPORT INFORMATION
  Report Type: Spontaneous
  Country: US (occurrence: US)
  Receive Date: 20181120
  Receipt Date: 20181120
  Transmission Date: 20190205
  Serious: No
  Sender: FDA-Public Use
  Company Number: US-JNJFOC-20180517127

PATIENT
  Sex: Male

DRUGS (11)
  1. METFORMIN [Concomitant]
     Active Substance: METFORMIN HYDROCHLORIDE
  2. AMLODIPINE [Concomitant]
     Active Substance: AMLODIPINE BESYLATE
  3. METHOTREXATE. [Concomitant]
     Active Substance: METHOTREXATE
  4. MULTIVITAMINS [Concomitant]
     Active Substance: VITAMINS
  5. TYLENOL ARTHRITIS PAIN [Concomitant]
     Active Substance: ACETAMINOPHEN
  6. LOVASTATIN. [Concomitant]
     Active Substance: LOVASTATIN
  7. PREDNISONE. [Concomitant]
     Active Substance: PREDNISONE
  8. IMBRUVICA [Suspect]
     Active Substance: IBRUTINIB
     Indication: CHRONIC LYMPHOCYTIC LEUKAEMIA
     Route: 065
     Dates: start: 20180119
  9. ASPIRIN. [Concomitant]
     Active Substance: ASPIRIN
  10. GLIPIZIDE. [Concomitant]
     Active Substance: GLIPIZIDE
  11. IMODIUM AD [Concomitant]
     Active Substance: LOPERAMIDE HYDROCHLORIDE

REACTIONS (1)
  - Bronchitis [Recovering/Resolving]
